FAERS Safety Report 5895113-1 (Version None)
Quarter: 2008Q3

REPORT INFORMATION
  Report Type: 
  Country: None (occurrence: None)
  Receive Date: 20080924
  Receipt Date: 20080915
  Transmission Date: 20090109
  Serious: Yes (Other)
  Sender: FDA-Public Use
  Company Number: BR-ROCHE-586800

PATIENT
  Sex: Female
  Weight: 72 kg

DRUGS (1)
  1. RIVOTRIL [Suspect]
     Indication: STRESS AT WORK
     Route: 048
     Dates: start: 20071101, end: 20071120

REACTIONS (1)
  - ABORTION SPONTANEOUS [None]
